FAERS Safety Report 8350995-9 (Version None)
Quarter: 2012Q2

REPORT INFORMATION
  Report Type: 
  Country: None (occurrence: None)
  Receive Date: 20120510
  Receipt Date: 20120430
  Transmission Date: 20120825
  Serious: No
  Sender: FDA-Public Use
  Company Number: US-BAYER-2012-045187

PATIENT
  Age: 71 Year
  Sex: Male
  Weight: 91 kg

DRUGS (3)
  1. NAPROXEN SODIUM [Suspect]
     Indication: BACK PAIN
     Dosage: 2 DF, ONCE
     Route: 048
  2. MULTI-VITAMIN [Concomitant]
  3. CHOLESTEROL- AND TRIGLYCERIDE REDUCERS [Concomitant]

REACTIONS (1)
  - BACK PAIN [None]
